FAERS Safety Report 17500420 (Version 4)
Quarter: 2020Q2

REPORT INFORMATION
  Report Type: Spontaneous
  Country: ES (occurrence: ES)
  Receive Date: 20200305
  Receipt Date: 20200626
  Transmission Date: 20200713
  Serious: Yes (Death, Life-Threatening)
  Sender: FDA-Public Use
  Company Number: ES-009507513-2003ESP001082

PATIENT
  Age: 86 Year
  Sex: Male
  Weight: 68 kg

DRUGS (11)
  1. METRONIDAZOLE. [Concomitant]
     Active Substance: METRONIDAZOLE
     Dosage: UNK
  2. BEMIPARIN SODIUM [Concomitant]
     Active Substance: BEMIPARIN SODIUM
     Indication: CARDIOVASCULAR EVENT PROPHYLAXIS
     Dosage: 5000 INTERNATIONAL UNIT, TOTAL DAILY DOSE
     Route: 058
     Dates: start: 20190304, end: 20190326
  3. ACETAMINOPHEN. [Concomitant]
     Active Substance: ACETAMINOPHEN
     Indication: ANALGESIC THERAPY
     Dosage: 1000 MILLIGRAM, TOTAL DAILY DOSE 3000MG
     Route: 042
     Dates: start: 20190303, end: 20190326
  4. METOCLOPRAMIDE. [Concomitant]
     Active Substance: METOCLOPRAMIDE
     Indication: ANTIEMETIC SUPPORTIVE CARE
     Dosage: 10 MILLIGRAM, PRN, 30 MG TOTAL DAILY DOSE IF REQUIRED
     Route: 042
     Dates: start: 20190304, end: 20190326
  5. ZINPLAVA [Suspect]
     Active Substance: BEZLOTOXUMAB
     Indication: CLOSTRIDIUM DIFFICILE INFECTION
     Dosage: 650 MILLIGRAM, ONCE
     Route: 042
     Dates: start: 20190311, end: 20190311
  6. VANCOMYCIN [Concomitant]
     Active Substance: VANCOMYCIN
     Dosage: UNK
  7. IPRATROPIUM BROMIDE. [Concomitant]
     Active Substance: IPRATROPIUM BROMIDE
     Indication: DYSPNOEA
     Dosage: 40 MILLIGRAM, TOTAL DAILY DOSE 160MG
     Dates: start: 20190303, end: 20190326
  8. METHYLPREDNISOLONE. [Concomitant]
     Active Substance: METHYLPREDNISOLONE
     Indication: DYSPNOEA
     Dosage: 20 MILLIGRAM, TOTAL DAILY DOSE 42 MG
     Route: 042
     Dates: start: 20190303, end: 20190326
  9. VANCOMYCIN [Concomitant]
     Active Substance: VANCOMYCIN
     Indication: CLOSTRIDIUM DIFFICILE INFECTION
     Dosage: 500 MILLIGRAM
     Route: 054
     Dates: start: 20190311, end: 20190314
  10. FUROSEMIDE. [Concomitant]
     Active Substance: FUROSEMIDE
     Indication: DYSPNOEA
     Dosage: 20 MILLIGRAM, 40MG TOTAL DAILY DOSE
     Route: 042
     Dates: start: 20190303, end: 20190326
  11. METRONIDAZOLE. [Concomitant]
     Active Substance: METRONIDAZOLE
     Indication: CLOSTRIDIUM DIFFICILE INFECTION
     Dosage: 500 MILLIGRAM, 1500 MG TOTAL DAILY DOSE
     Route: 042
     Dates: start: 20190304, end: 20190319

REACTIONS (6)
  - Atrial fibrillation [Fatal]
  - Drug ineffective [Fatal]
  - Malnutrition [Fatal]
  - Chronic obstructive pulmonary disease [Fatal]
  - Cardio-respiratory arrest [Fatal]
  - Cardiac failure [Fatal]

NARRATIVE: CASE EVENT DATE: 201903
